FAERS Safety Report 12503603 (Version 1)
Quarter: 2016Q2

REPORT INFORMATION
  Report Type: Spontaneous
  Country: US (occurrence: None)
  Receive Date: 20160627
  Receipt Date: 20160627
  Transmission Date: 20160815
  Serious: No
  Sender: FDA-Public Use
  Company Number: None

PATIENT
  Age: 23 Year
  Sex: Female
  Weight: 145 kg

DRUGS (1)
  1. DYLOJECT [Suspect]
     Active Substance: DICLOFENAC SODIUM
     Indication: PAIN
     Dosage: 3
     Route: 040
     Dates: start: 20160622, end: 20160622

REACTIONS (3)
  - Infusion site reaction [None]
  - Crying [None]
  - Infusion site pain [None]

NARRATIVE: CASE EVENT DATE: 20160623
